FAERS Safety Report 25219999 (Version 2)
Quarter: 2025Q2

REPORT INFORMATION
  Report Type: Spontaneous
  Country: FR (occurrence: FR)
  Receive Date: 20250421
  Receipt Date: 20250424
  Transmission Date: 20250717
  Serious: Yes (Hospitalization, Other)
  Sender: MYLAN
  Company Number: FR-GSK-FR2025EME006238

PATIENT
  Age: 46 Year
  Sex: Female
  Weight: 59 kg

DRUGS (20)
  1. KETOPROFEN [Suspect]
     Active Substance: KETOPROFEN
     Indication: Product used for unknown indication
     Dosage: QD, 1/D 5D
  2. RASAGILINE [Suspect]
     Active Substance: RASAGILINE
     Indication: Parkinson^s disease
     Dosage: QD 1 MORNING
  3. RASAGILINE [Suspect]
     Active Substance: RASAGILINE
     Dosage: 1 MILLIGRAM, QD
  4. ROPINIROLE [Suspect]
     Active Substance: ROPINIROLE
     Indication: Parkinson^s disease
     Dosage: 8 MILLIGRAM, QD (MORNING 7D)
  5. ROPINIROLE [Suspect]
     Active Substance: ROPINIROLE
     Dosage: QD (MORNING 7D)
  6. ROPINIROLE [Suspect]
     Active Substance: ROPINIROLE
     Dosage: QD (1 MORNING)
  7. ALPRAZOLAM [Suspect]
     Active Substance: ALPRAZOLAM
     Indication: Product used for unknown indication
     Dosage: 1 DOSAGE FORM, QD
  8. ZOPICLONE [Suspect]
     Active Substance: ZOPICLONE
     Indication: Product used for unknown indication
     Dosage: 1 DOSAGE FORM, QD
  9. REQUIP [Suspect]
     Active Substance: ROPINIROLE HYDROCHLORIDE
     Indication: Parkinson^s disease
     Dosage: 2 MILLIGRAM, QD (1 MORNING)
     Dates: start: 20200210
  10. REQUIP [Suspect]
     Active Substance: ROPINIROLE HYDROCHLORIDE
  11. REQUIP [Suspect]
     Active Substance: ROPINIROLE HYDROCHLORIDE
  12. REQUIP [Suspect]
     Active Substance: ROPINIROLE HYDROCHLORIDE
  13. LAMICTAL [Suspect]
     Active Substance: LAMOTRIGINE
     Indication: Product used for unknown indication
  14. SINEMET [Suspect]
     Active Substance: CARBIDOPA\LEVODOPA
     Indication: Tremor
     Dosage: 0.5 DOSAGE FORM, TID (HALF TABLET MORNING, NOON AND EVENING)
  15. SINEMET [Suspect]
     Active Substance: CARBIDOPA\LEVODOPA
     Dosage: TID (1.5 TAB MORNING, 1 TAB MIDDAY AND 1 TAB IN THE EVENING)
  16. SINEMET [Suspect]
     Active Substance: CARBIDOPA\LEVODOPA
     Dosage: TID (TID CURRENTLY (T TAB 3 TIMES) 8 HOURS
  17. SINEMET [Suspect]
     Active Substance: CARBIDOPA\LEVODOPA
     Dosage: TID (,4.5/D THAT IS TO SAY 1.5 TAB 3 TIMES)
  18. PRAMIPEXOLE [Suspect]
     Active Substance: PRAMIPEXOLE
     Indication: Product used for unknown indication
  19. AZILECT [Suspect]
     Active Substance: RASAGILINE MESYLATE
     Indication: Parkinson^s disease
  20. AZILECT [Suspect]
     Active Substance: RASAGILINE MESYLATE
     Indication: Behaviour disorder

REACTIONS (36)
  - Depression [Unknown]
  - Akinesia [Unknown]
  - Suicidal ideation [Unknown]
  - Injury [Unknown]
  - Adverse drug reaction [Unknown]
  - Pain in extremity [Unknown]
  - Tremor [Unknown]
  - Pruritus [Unknown]
  - Alopecia [Unknown]
  - Hyposmia [Unknown]
  - Mental disorder [Unknown]
  - Fatigue [Unknown]
  - Restless legs syndrome [Unknown]
  - Back pain [Unknown]
  - Paraesthesia [Unknown]
  - Lordosis [Unknown]
  - Osteoarthritis [Unknown]
  - Urinary incontinence [Unknown]
  - Disturbance in attention [Unknown]
  - Orthostatic intolerance [Unknown]
  - Memory impairment [Unknown]
  - Lack of spontaneous speech [Unknown]
  - Poor quality sleep [Unknown]
  - Gastrointestinal hypermotility [Unknown]
  - Attention deficit hyperactivity disorder [Unknown]
  - Fine motor skill dysfunction [Unknown]
  - Mixed anxiety and depressive disorder [Unknown]
  - Depressed mood [Unknown]
  - Weight increased [Unknown]
  - Depressive symptom [Unknown]
  - Behaviour disorder [Recovered/Resolved]
  - Gambling disorder [Unknown]
  - Insomnia [Unknown]
  - Eating disorder [Unknown]
  - Hypersexuality [Unknown]
  - Libido increased [Unknown]

NARRATIVE: CASE EVENT DATE: 20240301
